FAERS Safety Report 7227121-2 (Version None)
Quarter: 2011Q1

REPORT INFORMATION
  Report Type: 
  Country: None (occurrence: None)
  Receive Date: 20110114
  Receipt Date: 20110105
  Transmission Date: 20110831
  Serious: Yes (Hospitalization, Other)
  Sender: FDA-Public Use
  Company Number: FR-PFIZER INC-2010178251

PATIENT
  Age: 74 Year
  Sex: Female
  Weight: 62 kg

DRUGS (6)
  1. DROPERIDOL [Suspect]
     Indication: GENERAL ANAESTHESIA
     Dosage: 0.5 MG, DAILY
     Route: 042
  2. HYDROXYZINE HCL [Suspect]
     Indication: PREMEDICATION
     Dosage: 100 MG, SINGLE
     Route: 048
  3. MIDAZOLAM [Suspect]
     Indication: GENERAL ANAESTHESIA
     Dosage: 5 MG, DAILY
     Route: 042
  4. PROPOFOL [Suspect]
     Indication: GENERAL ANAESTHESIA
     Dosage: 100 MG, DAILY
     Route: 042
  5. SUFENTANIL [Suspect]
     Indication: GENERAL ANAESTHESIA
     Dosage: 20 UG, DAILY
     Route: 042
  6. PRAMIPEXOLE [Suspect]
     Indication: RESTLESS LEGS SYNDROME
     Dosage: 0.27 MG, UNK

REACTIONS (4)
  - TACHYCARDIA [None]
  - INSOMNIA [None]
  - RESTLESS LEGS SYNDROME [None]
  - SYSTOLIC HYPERTENSION [None]
